FAERS Safety Report 4660718-2 (Version None)
Quarter: 2005Q2

REPORT INFORMATION
  Report Type: 
  Country: None (occurrence: None)
  Receive Date: 20050512
  Receipt Date: 20050218
  Transmission Date: 20051028
  Serious: Yes (Hospitalization, Other)
  Sender: FDA-Public Use
  Company Number: US-MERCK-0502USA02896

PATIENT
  Age: 75 Year
  Sex: Male
  Weight: 70 kg

DRUGS (14)
  1. VIOXX [Suspect]
     Indication: ARTHRITIS
     Route: 048
     Dates: start: 20010901, end: 20021101
  2. CORZIDE TABLETS [Concomitant]
     Route: 065
  3. COZAAR [Concomitant]
     Route: 065
     Dates: start: 19990301
  4. ARTHROTEC [Concomitant]
     Route: 065
  5. TERAZOSIN HYDROCHLORIDE [Concomitant]
     Route: 065
  6. DETROL LA [Concomitant]
     Route: 065
  7. NEXIUM [Concomitant]
     Route: 065
  8. PROTONIX [Concomitant]
     Route: 065
  9. PLAVIX [Concomitant]
     Route: 065
     Dates: start: 20010901, end: 20020301
  10. ULTRACET [Concomitant]
     Route: 065
  11. TOPROL-XL [Concomitant]
     Route: 065
     Dates: start: 20021101
  12. LESCOL [Concomitant]
     Route: 065
  13. ASPIRIN [Concomitant]
     Route: 065
     Dates: start: 19890101
  14. SAW PALMETTO [Concomitant]
     Route: 065

REACTIONS (23)
  - ANAEMIA [None]
  - ANEURYSM [None]
  - ANGINA UNSTABLE [None]
  - AORTIC VALVE INCOMPETENCE [None]
  - BLOOD POTASSIUM INCREASED [None]
  - CARDIOMYOPATHY [None]
  - CAROTID ARTERY STENOSIS [None]
  - DIABETES MELLITUS [None]
  - DIPLOPIA [None]
  - EMOTIONAL DISTRESS [None]
  - FEAR [None]
  - GASTRITIS [None]
  - GASTROINTESTINAL HAEMORRHAGE [None]
  - GASTROOESOPHAGEAL REFLUX DISEASE [None]
  - ISCHAEMIC STROKE [None]
  - MITRAL VALVE INCOMPETENCE [None]
  - MYOCARDIAL ISCHAEMIA [None]
  - NEPHROLITHIASIS [None]
  - PLEURAL EFFUSION [None]
  - RENAL CYST [None]
  - RENAL FAILURE CHRONIC [None]
  - SICK SINUS SYNDROME [None]
  - SINUS BRADYCARDIA [None]
